FAERS Safety Report 21854897 (Version 1)
Quarter: 2023Q1

REPORT INFORMATION
  Report Type: Spontaneous
  Country: US (occurrence: None)
  Receive Date: 20230112
  Receipt Date: 20230112
  Transmission Date: 20230418
  Serious: Yes (Hospitalization)
  Sender: FDA-Public Use
  Company Number: None

PATIENT
  Age: 70 Year
  Sex: Male

DRUGS (17)
  1. KOGENATE FS [Suspect]
     Active Substance: ANTIHEMOPHILIC FACTOR, HUMAN RECOMBINANT
     Indication: Factor VIII deficiency
     Dosage: 2000 UNIT? ?INFUSE 4828 IU (TWO VIALS OF 2272 IU AND 1 VIAL OF 284 IU) INTRAVENOUSLY IN CASE OF MAJO
     Route: 042
     Dates: start: 20180914
  2. KOGENATE FS [Suspect]
     Active Substance: ANTIHEMOPHILIC FACTOR, HUMAN RECOMBINANT
     Dosage: FREQUENCY : AS DIRECTED;?
     Route: 042
  3. ALPRAZOLAM [Concomitant]
  4. COMBIGAN SOL [Concomitant]
  5. FLUTICASONE SPR [Concomitant]
  6. GLIMEPIRIDE [Concomitant]
  7. JANUMET [Concomitant]
     Active Substance: METFORMIN HYDROCHLORIDE\SITAGLIPTIN PHOSPHATE
  8. LANTUS [Concomitant]
  9. LATANOPROST SOL [Concomitant]
  10. LINZESS [Concomitant]
     Active Substance: LINACLOTIDE
  11. LOSARTAN POTASSIUM [Concomitant]
     Active Substance: LOSARTAN POTASSIUM
  12. METOPROLOL [Concomitant]
     Active Substance: METOPROLOL
  13. PANTOPRAZOLE [Concomitant]
     Active Substance: PANTOPRAZOLE
  14. PRAVASTATIN [Concomitant]
     Active Substance: PRAVASTATIN
  15. TAMSULOSIN [Concomitant]
  16. TRESIBA FLEX [Concomitant]
  17. TRULICITY [Concomitant]
     Active Substance: DULAGLUTIDE

REACTIONS (2)
  - Fall [None]
  - Foot fracture [None]

NARRATIVE: CASE EVENT DATE: 20221226
